FAERS Safety Report 16424281 (Version 1)
Quarter: 2019Q2

REPORT INFORMATION
  Report Type: Spontaneous
  Country: US (occurrence: US)
  Receive Date: 20190613
  Receipt Date: 20190613
  Transmission Date: 20190711
  Serious: No
  Sender: FDA-Public Use
  Company Number: US-AUROBINDO-AUR-APU-2018-023217

PATIENT
  Sex: Male
  Weight: 87.98 kg

DRUGS (1)
  1. OLANZAPINE TABLETS 5MG [Suspect]
     Active Substance: OLANZAPINE
     Indication: SLEEP DEFICIT
     Dosage: 2 DOSAGE FORM, DAILY
     Route: 065
     Dates: end: 20180420

REACTIONS (4)
  - Weight increased [Unknown]
  - Hypersomnia [Unknown]
  - Breast enlargement [Unknown]
  - Amnesia [Unknown]
